FAERS Safety Report 17276238 (Version 1)
Quarter: 2020Q1

REPORT INFORMATION
  Report Type: Spontaneous
  Country: US (occurrence: US)
  Receive Date: 20200116
  Receipt Date: 20200116
  Transmission Date: 20200409
  Serious: No
  Sender: FDA-Public Use
  Company Number: US-GLAXOSMITHKLINE-US2020AMR006362

PATIENT
  Sex: Female

DRUGS (5)
  1. TYLENOL [Concomitant]
     Active Substance: ACETAMINOPHEN
     Indication: ARTHRITIS
     Dosage: 2 DF, BID
  2. VOLTAREN EMULGEL JOINT PAIN REGULAR STRENGTH (1.16%) GEL [Suspect]
     Active Substance: DICLOFENAC DIETHYLAMINE
     Indication: ARTHRITIS
  3. VOLTAREN EMULGEL JOINT PAIN REGULAR STRENGTH (1.16%) GEL [Suspect]
     Active Substance: DICLOFENAC DIETHYLAMINE
     Indication: ARTHRITIS
  4. VOLTAREN EMULGEL JOINT PAIN REGULAR STRENGTH (1.16%) GEL [Suspect]
     Active Substance: DICLOFENAC DIETHYLAMINE
     Indication: ARTHRITIS
     Dosage: UNK, 2 TO 3 OR 4 TIMES A DAY
  5. VOLTAREN EMULGEL JOINT PAIN REGULAR STRENGTH (1.16%) GEL [Suspect]
     Active Substance: DICLOFENAC DIETHYLAMINE
     Indication: ARTHRITIS

REACTIONS (2)
  - Product use in unapproved indication [Unknown]
  - Drug effective for unapproved indication [Unknown]
